FAERS Safety Report 15796127 (Version 1)
Quarter: 2019Q1

REPORT INFORMATION
  Report Type: Spontaneous
  Country: US (occurrence: US)
  Receive Date: 20190108
  Receipt Date: 20190108
  Transmission Date: 20190417
  Serious: Yes (Other)
  Sender: FDA-Public Use
  Company Number: US-BAXTER-2018BAX031485

PATIENT
  Age: 81 Year
  Sex: Male

DRUGS (10)
  1. CEFTRIAXONE. [Concomitant]
     Active Substance: CEFTRIAXONE
     Indication: SEPSIS
     Route: 042
  2. DAPTOMYCIN. [Suspect]
     Active Substance: DAPTOMYCIN
     Indication: STAPHYLOCOCCAL BACTERAEMIA
     Dosage: ON DAY 18 DAPTOMYCIN MONOTHERAPY
     Route: 042
  3. LEVOFLOXACIN. [Concomitant]
     Active Substance: LEVOFLOXACIN
     Indication: URINARY TRACT INFECTION
  4. DAPTOMYCIN. [Suspect]
     Active Substance: DAPTOMYCIN
     Dosage: ON DAY 25 DAPTOMYCIN PLUS GENTAMICIN COMBINATION THERAPY
     Route: 042
  5. LEVOFLOXACIN. [Concomitant]
     Active Substance: LEVOFLOXACIN
     Indication: SEPSIS
     Dosage: MOST LIKELY TO BE ORAL
     Route: 065
  6. VANCOMYCIN INJECTION, USP [Suspect]
     Active Substance: VANCOMYCIN
     Indication: STAPHYLOCOCCAL BACTERAEMIA
     Dosage: ON DAY 2. VANCOMYCIN TROUGHS WERE MAINTAINED GREATER THAN 10 MG/L (RANGE 10.2-12.2 MG/L)
     Route: 042
  7. GENTAMICIN SULFATE IN 0.9% SODIUM CHLORIDE INJECTION [Suspect]
     Active Substance: GENTAMICIN SULFATE
     Indication: STAPHYLOCOCCAL BACTERAEMIA
     Dosage: ON DAY 25, DAPTOMYCIN PLUS GENTAMICIN COMBINATION THERAPY
     Route: 042
  8. TAMSULOSIN [Concomitant]
     Active Substance: TAMSULOSIN
     Indication: PRODUCT USED FOR UNKNOWN INDICATION
     Route: 065
  9. CLONIDINE. [Concomitant]
     Active Substance: CLONIDINE
     Indication: PRODUCT USED FOR UNKNOWN INDICATION
     Route: 065
  10. CEFTRIAXONE. [Concomitant]
     Active Substance: CEFTRIAXONE
     Indication: URINARY TRACT INFECTION

REACTIONS (1)
  - Treatment failure [Unknown]
